FAERS Safety Report 5053285-5 (Version None)
Quarter: 2006Q3

REPORT INFORMATION
  Report Type: 
  Country: None (occurrence: None)
  Receive Date: 20060712
  Receipt Date: 20060626
  Transmission Date: 20061208
  Serious: Yes (Other)
  Sender: FDA-Public Use
  Company Number: 225648

PATIENT
  Age: 48 Year
  Sex: Male

DRUGS (1)
  1. RAPTIVA [Suspect]
     Indication: PSORIASIS
     Dosage: 0.9 ML, 1/WEEK, SUBCUTANEOUS
     Route: 058

REACTIONS (13)
  - CHILLS [None]
  - DISEASE RECURRENCE [None]
  - DISSEMINATED INTRAVASCULAR COAGULATION [None]
  - DRUG HYPERSENSITIVITY [None]
  - FATIGUE [None]
  - HAEMATOMA [None]
  - HAEMORRHAGE [None]
  - HEADACHE [None]
  - INFLUENZA [None]
  - MUSCLE INJURY [None]
  - PAIN [None]
  - PULMONARY EMBOLISM [None]
  - RHINOLARYNGITIS [None]
